FAERS Safety Report 5877692-3 (Version None)
Quarter: 2008Q3

REPORT INFORMATION
  Report Type: 
  Country: None (occurrence: None)
  Receive Date: 20080911
  Receipt Date: 20080908
  Transmission Date: 20090109
  Serious: Yes (Death)
  Sender: FDA-Public Use
  Company Number: JP-ABBOTT-08P-087-0457011-00

PATIENT
  Age: 78 Year
  Sex: Male
  Weight: 57 kg

DRUGS (3)
  1. LEUPROLIDE ACETATE [Suspect]
     Indication: PROSTATE CANCER STAGE II
     Route: 058
     Dates: start: 20051228, end: 20070604
  2. LEUPROLIDE ACETATE [Suspect]
     Route: 058
     Dates: start: 20071106, end: 20071106
  3. LEUPROLIDE ACETATE [Suspect]
     Dates: start: 20051130, end: 20051130

REACTIONS (1)
  - MALIGNANT NEOPLASM OF RENAL PELVIS [None]
